FAERS Safety Report 6409856-4 (Version None)
Quarter: 2009Q4

REPORT INFORMATION
  Report Type: 
  Country: None (occurrence: None)
  Receive Date: 20091022
  Receipt Date: 20091013
  Transmission Date: 20100525
  Serious: Yes (Other)
  Sender: FDA-Public Use
  Company Number: US-JNJFOC-20091004568

PATIENT
  Sex: Female

DRUGS (1)
  1. TOPAMAX [Suspect]
     Indication: MIGRAINE PROPHYLAXIS
     Dosage: 100MG + 50MG PER DAY
     Route: 048
     Dates: start: 20090501

REACTIONS (3)
  - ALOPECIA [None]
  - ANXIETY [None]
  - OBSESSIVE-COMPULSIVE DISORDER [None]
